FAERS Safety Report 21453788 (Version 2)
Quarter: 2022Q4

REPORT INFORMATION
  Report Type: Spontaneous
  Country: US (occurrence: US)
  Receive Date: 20221013
  Receipt Date: 20221121
  Transmission Date: 20230112
  Serious: Yes (Other)
  Sender: FDA-Public Use
  Company Number: US-CELGENE-USA-20210502348

PATIENT
  Age: 67 Year
  Sex: Male

DRUGS (6)
  1. POMALYST [Suspect]
     Active Substance: POMALIDOMIDE
     Indication: Plasma cell myeloma
     Dosage: FREQUENCY TEXT: NOT PROVIDED
     Route: 048
     Dates: start: 20180510
  2. POMALYST [Suspect]
     Active Substance: POMALIDOMIDE
     Dosage: 2 MILLIGRAMS
     Route: 048
     Dates: start: 201810
  3. POMALYST [Suspect]
     Active Substance: POMALIDOMIDE
     Dosage: 1 MILLIGRAMS
     Route: 048
     Dates: start: 201812
  4. POMALYST [Suspect]
     Active Substance: POMALIDOMIDE
     Route: 048
     Dates: start: 202002, end: 202010
  5. POMALYST [Suspect]
     Active Substance: POMALIDOMIDE
     Dosage: 2 MG, OTHER
     Route: 048
  6. VELCADE [Concomitant]
     Active Substance: BORTEZOMIB
     Indication: Product used for unknown indication
     Dosage: FREQUENCY TEXT: NOT PROVIDED
     Route: 065

REACTIONS (1)
  - Neuropathy peripheral [Unknown]

NARRATIVE: CASE EVENT DATE: 20200226
